FAERS Safety Report 10519224 (Version 3)
Quarter: 2015Q4

REPORT INFORMATION
  Report Type: Spontaneous
  Country: US (occurrence: US)
  Receive Date: 20141015
  Receipt Date: 20151109
  Transmission Date: 20160304
  Serious: Yes (Other)
  Sender: FDA-Public Use
  Company Number: US-GLAXOSMITHKLINE-US2014002763

PATIENT
  Age: 26 Year
  Sex: Female

DRUGS (5)
  1. LAMICTAL [Suspect]
     Active Substance: LAMOTRIGINE
     Dosage: 150 MG, U
  2. FOLIC ACID. [Concomitant]
     Active Substance: FOLIC ACID
  3. LAMICTAL [Suspect]
     Active Substance: LAMOTRIGINE
     Indication: EPILEPSY
     Dosage: 150 MG, BID
     Route: 048
     Dates: start: 200311
  4. LAMICTAL [Suspect]
     Active Substance: LAMOTRIGINE
     Indication: EPILEPSY
     Dosage: 150 MG, BID
     Route: 048
     Dates: start: 200311
  5. KEPPRA [Concomitant]
     Active Substance: LEVETIRACETAM

REACTIONS (11)
  - Stress at work [Recovering/Resolving]
  - Drug dose omission [Not Recovered/Not Resolved]
  - Seizure [Recovering/Resolving]
  - Cardiac disorder [Unknown]
  - Catheterisation cardiac [Recovered/Resolved]
  - Disturbance in attention [Not Recovered/Not Resolved]
  - Vertigo [Not Recovered/Not Resolved]
  - Loss of consciousness [Recovering/Resolving]
  - Dizziness [Not Recovered/Not Resolved]
  - Heart rate irregular [Not Recovered/Not Resolved]
  - Mental disorder [Unknown]

NARRATIVE: CASE EVENT DATE: 201408
